FAERS Safety Report 24731542 (Version 1)
Quarter: 2024Q4

REPORT INFORMATION
  Report Type: Spontaneous
  Country: JP (occurrence: JP)
  Receive Date: 20241213
  Receipt Date: 20241213
  Transmission Date: 20250114
  Serious: Yes (Life-Threatening, Hospitalization, Other)
  Sender: SANDOZ
  Company Number: JP-SANDOZ-SDZ2024JP102310

PATIENT
  Age: 7 Decade
  Sex: Female

DRUGS (1)
  1. METHOTREXATE [Suspect]
     Active Substance: METHOTREXATE
     Indication: Rheumatoid arthritis
     Dosage: UNK
     Route: 065

REACTIONS (6)
  - Toxicity to various agents [Unknown]
  - Pneumonia [Unknown]
  - Sepsis [Unknown]
  - Pancytopenia [Recovering/Resolving]
  - Duodenal ulcer haemorrhage [Unknown]
  - Mucosal disorder [Unknown]
